FAERS Safety Report 9563805 (Version 1)
Quarter: 2013Q3

REPORT INFORMATION
  Report Type: Spontaneous
  Country: US (occurrence: None)
  Receive Date: 20130926
  Receipt Date: 20130926
  Transmission Date: 20140515
  Serious: Yes (Death)
  Sender: FDA-Public Use
  Company Number: ADR-2013-01696

PATIENT
  Age: 83 Year
  Sex: Male

DRUGS (2)
  1. BACLOFEN [Suspect]
     Indication: PAIN
  2. FENTANYL [Suspect]

REACTIONS (1)
  - Pneumonia [None]
